FAERS Safety Report 21548505 (Version 1)
Quarter: 2022Q4

REPORT INFORMATION
  Report Type: Spontaneous
  Country: KR (occurrence: KR)
  Receive Date: 20221103
  Receipt Date: 20221103
  Transmission Date: 20230113
  Serious: Yes (Hospitalization)
  Sender: FDA-Public Use
  Company Number: KR-MYLANLABS-2022M1118813

PATIENT
  Sex: Male

DRUGS (3)
  1. LYRICA [Suspect]
     Active Substance: PREGABALIN
     Indication: Radiculopathy
     Dosage: 1 DOSAGE FORM, QD
     Route: 065
     Dates: start: 20211112, end: 20211117
  2. ACECLOFENAC [Suspect]
     Active Substance: ACECLOFENAC
     Indication: Radiculopathy
     Dosage: 1 DOSAGE FORM, QD
     Route: 065
     Dates: start: 20211112, end: 20211117
  3. MONTELUKAST SODIUM [Suspect]
     Active Substance: MONTELUKAST SODIUM
     Indication: Asthma
     Dosage: 1 DOSAGE FORM, QD
     Route: 065
     Dates: start: 20210617, end: 20211117

REACTIONS (2)
  - Oedema peripheral [Recovering/Resolving]
  - Off label use [Unknown]

NARRATIVE: CASE EVENT DATE: 20211112
